FAERS Safety Report 10551450 (Version 3)
Quarter: 2014Q4

REPORT INFORMATION
  Report Type: Spontaneous
  Country: US (occurrence: US)
  Receive Date: 20141029
  Receipt Date: 20141126
  Transmission Date: 20150529
  Serious: Yes (Hospitalization)
  Sender: FDA-Public Use
  Company Number: US-JNJFOC-20141014824

PATIENT
  Age: 80 Year
  Sex: Male
  Weight: 53 kg

DRUGS (5)
  1. GLIPIZIDE. [Concomitant]
     Active Substance: GLIPIZIDE
     Indication: DIABETES MELLITUS
     Route: 048
  2. IMBRUVICA [Suspect]
     Active Substance: IBRUTINIB
     Indication: CHRONIC LYMPHOCYTIC LEUKAEMIA
     Route: 048
     Dates: start: 20140927
  3. GABAPENTIN. [Concomitant]
     Active Substance: GABAPENTIN
     Indication: NEUROPATHY PERIPHERAL
     Route: 048
  4. IMBRUVICA [Suspect]
     Active Substance: IBRUTINIB
     Indication: CHRONIC LYMPHOCYTIC LEUKAEMIA
     Route: 048
     Dates: start: 20140301, end: 20140920
  5. METFORMIN [Concomitant]
     Active Substance: METFORMIN HYDROCHLORIDE
     Indication: DIABETES MELLITUS
     Route: 048

REACTIONS (10)
  - Blood count abnormal [Unknown]
  - Pain in extremity [Unknown]
  - Staphylococcal bacteraemia [Unknown]
  - Gastrointestinal infection [Recovered/Resolved]
  - Back pain [Unknown]
  - Feeling cold [Unknown]
  - Musculoskeletal discomfort [Recovering/Resolving]
  - Fall [Unknown]
  - Diarrhoea [Unknown]
  - Head injury [Unknown]

NARRATIVE: CASE EVENT DATE: 2014
